FAERS Safety Report 9259220 (Version 1)
Quarter: 2013Q2

REPORT INFORMATION
  Report Type: Spontaneous
  Country: US (occurrence: US)
  Receive Date: 20130426
  Receipt Date: 20130426
  Transmission Date: 20140414
  Serious: Yes (Other)
  Sender: FDA-Public Use
  Company Number: US-ASTRAZENECA-2013SE27902

PATIENT
  Age: 39 Year
  Sex: Female
  Weight: 90.3 kg

DRUGS (6)
  1. NEXIUM [Suspect]
     Indication: GASTROOESOPHAGEAL REFLUX DISEASE
     Route: 048
  2. DEPROVARA [Concomitant]
     Indication: MENSTRUATION IRREGULAR
  3. CYMBALTA [Concomitant]
     Indication: MUSCLE DISORDER
  4. CYMBALTA [Concomitant]
     Indication: MIGRAINE
  5. ZOFRAN [Concomitant]
     Indication: NAUSEA
  6. ZANAFLEX [Concomitant]
     Indication: MUSCLE DISORDER

REACTIONS (7)
  - Nephrolithiasis [Unknown]
  - Pituitary tumour [Unknown]
  - Intervertebral disc protrusion [Unknown]
  - Migraine [Unknown]
  - Musculoskeletal stiffness [Unknown]
  - Fatigue [Unknown]
  - Malaise [Recovering/Resolving]
